FAERS Safety Report 9410756 (Version 2)
Quarter: 2013Q3

REPORT INFORMATION
  Report Type: Spontaneous
  Country: CA (occurrence: CA)
  Receive Date: 20130719
  Receipt Date: 20130925
  Transmission Date: 20140515
  Serious: Yes (Death, Hospitalization, Other)
  Sender: FDA-Public Use
  Company Number: CA-CELGENEUS-028-21880-13053152

PATIENT
  Age: 56 Year
  Sex: Male
  Weight: 65.1 kg

DRUGS (17)
  1. REVLIMID [Suspect]
     Indication: PLASMA CELL MYELOMA
     Dosage: 25 MILLIGRAM
     Route: 048
     Dates: start: 20120123, end: 20130502
  2. DEXAMETHASONE [Suspect]
     Indication: PLASMA CELL MYELOMA
     Dosage: 40 MILLIGRAM
     Route: 048
     Dates: start: 20120123, end: 20130503
  3. DEXAMETHASONE [Suspect]
     Dosage: 8 MILLIGRAM
     Route: 041
     Dates: start: 20120123, end: 20130419
  4. ELOTUZUMAB [Suspect]
     Indication: PLASMA CELL MYELOMA
     Dosage: 10 MILLIGRAM/KILOGRAM
     Route: 041
     Dates: start: 20130123, end: 20130419
  5. AVANDAMET-ROSIGLITAZONE [Concomitant]
     Indication: PRODUCT USED FOR UNKNOWN INDICATION
     Route: 065
     Dates: start: 2002
  6. AMLODIPINE [Concomitant]
     Indication: PRODUCT USED FOR UNKNOWN INDICATION
     Route: 065
     Dates: start: 2002
  7. CRESTOR [Concomitant]
     Indication: PRODUCT USED FOR UNKNOWN INDICATION
     Route: 065
     Dates: start: 2002
  8. METOCLOPRAMIDE [Concomitant]
     Indication: PRODUCT USED FOR UNKNOWN INDICATION
     Route: 065
     Dates: start: 20110806
  9. ONDANSETRON [Concomitant]
     Indication: PRODUCT USED FOR UNKNOWN INDICATION
     Route: 065
     Dates: start: 20110924
  10. OXYCODONE [Concomitant]
     Indication: PRODUCT USED FOR UNKNOWN INDICATION
     Route: 065
     Dates: start: 201107
  11. LOPERAMIDE [Concomitant]
     Indication: PRODUCT USED FOR UNKNOWN INDICATION
     Route: 065
     Dates: start: 201107
  12. ASA [Concomitant]
     Indication: PRODUCT USED FOR UNKNOWN INDICATION
     Route: 065
     Dates: start: 20110105
  13. MULTIVITAMINS [Concomitant]
     Indication: PRODUCT USED FOR UNKNOWN INDICATION
     Route: 065
     Dates: start: 201101
  14. SYNTHROID [Concomitant]
     Indication: ADVERSE EVENT
     Route: 065
     Dates: start: 20120421
  15. COLD FX [Concomitant]
     Indication: PRODUCT USED FOR UNKNOWN INDICATION
     Route: 065
     Dates: start: 20120130, end: 20120206
  16. DALTEPARIN [Concomitant]
     Indication: ADVERSE EVENT
     Route: 065
     Dates: start: 20120810
  17. AVANDAMET-METAFORME [Concomitant]
     Indication: PRODUCT USED FOR UNKNOWN INDICATION
     Route: 065
     Dates: start: 2002

REACTIONS (1)
  - Plasma cell myeloma [Fatal]
